FAERS Safety Report 8144896-9 (Version None)
Quarter: 2012Q1

REPORT INFORMATION
  Report Type: 
  Country: None (occurrence: None)
  Receive Date: 20120217
  Receipt Date: 20120210
  Transmission Date: 20120608
  Serious: Yes (Other)
  Sender: FDA-Public Use
  Company Number: ES-GLAXOSMITHKLINE-B0781972A

PATIENT
  Age: 86 Year
  Sex: Female

DRUGS (1)
  1. ACITRETIN [Suspect]
     Indication: PRODUCT USED FOR UNKNOWN INDICATION
     Dosage: 35MG PER DAY
     Route: 048
     Dates: start: 20110322

REACTIONS (1)
  - NORMOCHROMIC NORMOCYTIC ANAEMIA [None]
